FAERS Safety Report 10226632 (Version 8)
Quarter: 2014Q3

REPORT INFORMATION
  Report Type: Spontaneous
  Country: GB (occurrence: GB)
  Receive Date: 20140609
  Receipt Date: 20140812
  Transmission Date: 20150326
  Serious: Yes (Other)
  Sender: FDA-Public Use
  Company Number: PHFR2014GB003997

PATIENT
  Age: 35 Year
  Sex: Male

DRUGS (4)
  1. FILGRASTIM [Concomitant]
     Active Substance: FILGRASTIM
     Dosage: UKN
  2. CLOZARIL [Suspect]
     Active Substance: CLOZAPINE
     Dosage: 700 MG
     Route: 048
  3. AMISULPRIDE [Suspect]
     Active Substance: AMISULPRIDE
     Dosage: UKN
  4. CLOZARIL [Suspect]
     Active Substance: CLOZAPINE
     Indication: SCHIZOPHRENIA
     Dosage: UKN
     Route: 048
     Dates: start: 20010625

REACTIONS (10)
  - Schizophrenia [Unknown]
  - Malaise [Unknown]
  - Sedation [Unknown]
  - White blood cell count increased [Recovered/Resolved]
  - Neutrophil count increased [Recovered/Resolved]
  - Platelet count decreased [Unknown]
  - Campylobacter infection [Recovered/Resolved]
  - Neutrophil count decreased [Recovered/Resolved]
  - Sluggishness [Unknown]
  - White blood cell count decreased [Not Recovered/Not Resolved]

NARRATIVE: CASE EVENT DATE: 20140602
